FAERS Safety Report 6567050-0 (Version None)
Quarter: 2010Q1

REPORT INFORMATION
  Report Type: 
  Country: None (occurrence: None)
  Receive Date: 20100128
  Receipt Date: 20100113
  Transmission Date: 20100710
  Serious: Yes (Death, Hospitalization)
  Sender: FDA-Public Use
  Company Number: 2010AC000006

PATIENT
  Age: 64 Year
  Sex: Male

DRUGS (22)
  1. DIGOXIN [Suspect]
     Dosage: 0.25 MG;QD;PO
     Route: 048
     Dates: start: 20040101
  2. COREG [Concomitant]
  3. FUROSEMIDE [Concomitant]
  4. WARFARIN SODIUM [Concomitant]
  5. CAPTOPRIL [Concomitant]
  6. ALDATONE [Concomitant]
  7. ZITHROMAX [Concomitant]
  8. PREDNISONE [Concomitant]
  9. COMBIVENT [Concomitant]
  10. AMOXICILLIN [Concomitant]
  11. CRESTOR [Concomitant]
  12. AMBIEN [Concomitant]
  13. ALPRAZOLAM [Concomitant]
  14. POTASSIUM CHLORIDE [Concomitant]
  15. ZETIA [Concomitant]
  16. METFORMIN HCL [Concomitant]
  17. INDOMETHACIN [Concomitant]
  18. COLCHICINE [Concomitant]
  19. LASIX [Concomitant]
  20. COUMADIN [Concomitant]
  21. ALBUTEROL [Concomitant]
  22. POTASSIUM CHLORIDE [Concomitant]

REACTIONS (10)
  - BRONCHITIS [None]
  - CARDIAC FAILURE CONGESTIVE [None]
  - ECONOMIC PROBLEM [None]
  - HYPERTENSION [None]
  - MULTIPLE INJURIES [None]
  - MYOCARDIAL ISCHAEMIA [None]
  - PAIN [None]
  - PNEUMONIA [None]
  - UNEVALUABLE EVENT [None]
  - UPPER RESPIRATORY TRACT INFECTION [None]
